FAERS Safety Report 24396992 (Version 1)
Quarter: 2024Q4

REPORT INFORMATION
  Report Type: Report from Study
  Country: US (occurrence: US)
  Receive Date: 20241004
  Receipt Date: 20241004
  Transmission Date: 20250115
  Serious: Yes (Other)
  Sender: VIFOR
  Company Number: US-Vifor (International) Inc.-VIT-2024-08899

PATIENT
  Sex: Female

DRUGS (1)
  1. VELPHORO [Suspect]
     Active Substance: SUCROFERRIC OXYHYDROXIDE
     Indication: Product used for unknown indication
     Dosage: 4 TIMES A DAY (TAKEN WITH MEALS)
     Route: 048

REACTIONS (1)
  - Transplant [Unknown]
